FAERS Safety Report 17896206 (Version 2)
Quarter: 2020Q3

REPORT INFORMATION
  Report Type: Spontaneous
  Country: CH (occurrence: CH)
  Receive Date: 20200615
  Receipt Date: 20200818
  Transmission Date: 20201103
  Serious: Yes (Other)
  Sender: FDA-Public Use
  Company Number: CH-PFIZER INC-2020209130

PATIENT
  Age: 67 Year
  Sex: Female
  Weight: 51 kg

DRUGS (2)
  1. XALKORI [Suspect]
     Active Substance: CRIZOTINIB
     Dosage: 200MG 2X/DAY, ALTERNATED 1X/DAY
  2. XALKORI [Suspect]
     Active Substance: CRIZOTINIB
     Indication: LUNG NEOPLASM MALIGNANT
     Dosage: 250 MG, 2X
     Route: 048
     Dates: start: 20200504, end: 20200527

REACTIONS (4)
  - Asthenia [Unknown]
  - Decreased appetite [Unknown]
  - Hepatotoxicity [Not Recovered/Not Resolved]
  - Hepatocellular injury [Not Recovered/Not Resolved]

NARRATIVE: CASE EVENT DATE: 2020
